FAERS Safety Report 9601959 (Version 1)
Quarter: 2013Q4

REPORT INFORMATION
  Report Type: Spontaneous
  Country: CA (occurrence: None)
  Receive Date: 20131002
  Receipt Date: 20131002
  Transmission Date: 20140711
  Serious: Yes (Hospitalization)
  Sender: FDA-Public Use
  Company Number: CA-ALKEM-000140

PATIENT
  Age: 75 Year
  Sex: Female

DRUGS (1)
  1. GABAPENTIN (GABAPENTIN) [Suspect]
     Indication: FIBROMYALGIA
     Dosage: 1800.00-MG. 1.0 DAYS

REACTIONS (6)
  - Drug withdrawal syndrome [None]
  - Hypokalaemia [None]
  - Fall [None]
  - Hepatic enzyme increased [None]
  - Renal impairment [None]
  - Off label use [None]
